FAERS Safety Report 19229696 (Version 1)
Quarter: 2021Q2

REPORT INFORMATION
  Report Type: Spontaneous
  Country: US (occurrence: US)
  Receive Date: 20210506
  Receipt Date: 20210506
  Transmission Date: 20210717
  Serious: Yes (Other)
  Sender: FDA-Public Use
  Company Number: None

PATIENT
  Age: 74 Year
  Sex: Female
  Weight: 81.45 kg

DRUGS (8)
  1. ROSUVASTATIN. [Concomitant]
     Active Substance: ROSUVASTATIN
  2. FUROSEMIDE. [Concomitant]
     Active Substance: FUROSEMIDE
  3. ATENOLOL. [Concomitant]
     Active Substance: ATENOLOL
  4. LOSARTAN POTASSIUM. [Suspect]
     Active Substance: LOSARTAN POTASSIUM
     Indication: HYPERTENSION
     Route: 048
     Dates: start: 20201023, end: 20201028
  5. POTASSIUM CHLORIDE. [Concomitant]
     Active Substance: POTASSIUM CHLORIDE
  6. VITAMIN D3 [Concomitant]
     Active Substance: CHOLECALCIFEROL
  7. XARELTO [Concomitant]
     Active Substance: RIVAROXABAN
  8. ACETAMINOPHEN. [Concomitant]
     Active Substance: ACETAMINOPHEN

REACTIONS (7)
  - Product substitution issue [None]
  - Manufacturing materials issue [None]
  - Blood pressure systolic increased [None]
  - Product formulation issue [None]
  - Feeling abnormal [None]
  - Therapeutic response decreased [None]
  - Incorrect dose administered by product [None]

NARRATIVE: CASE EVENT DATE: 20201028
